FAERS Safety Report 11751292 (Version 1)
Quarter: 2015Q4

REPORT INFORMATION
  Report Type: Other
  Country: TR (occurrence: NO)
  Receive Date: 20151118
  Receipt Date: 20151118
  Transmission Date: 20160304
  Serious: Yes (Hospitalization)
  Sender: FDA-Public Use
  Company Number: TR-SEPTODONT-201503078

PATIENT
  Age: 66 Year
  Sex: Male

DRUGS (1)
  1. ARTICAINE HYDROCHLORIDE WITH EPINEPHRINE [Suspect]
     Active Substance: ARTICAINE\EPINEPHRINE
     Indication: LOCAL ANAESTHESIA
     Dosage: UNKNOWN
     Route: 004

REACTIONS (4)
  - Deafness unilateral [Recovering/Resolving]
  - Tinnitus [Recovered/Resolved]
  - Sudden hearing loss [Recovering/Resolving]
  - Balance disorder [Recovered/Resolved]
